FAERS Safety Report 7353954-8 (Version None)
Quarter: 2011Q1

REPORT INFORMATION
  Report Type: 
  Country: None (occurrence: None)
  Receive Date: 20110315
  Receipt Date: 20110301
  Transmission Date: 20110831
  Serious: Yes (Hospitalization, Other)
  Sender: FDA-Public Use
  Company Number: PHHY2010BR62001

PATIENT
  Sex: Male

DRUGS (3)
  1. FORASEQ [Suspect]
     Indication: ASTHMA
     Dosage: TWICE A DAY
  2. CLENIL COMPOSITUM [Concomitant]
     Dosage: UNK
  3. FORASEQ [Suspect]
     Indication: EMPHYSEMA
     Dosage: THRICE A DAY

REACTIONS (5)
  - TYPE 2 DIABETES MELLITUS [None]
  - DIZZINESS [None]
  - DYSPNOEA [None]
  - ASTHMA [None]
  - BLOOD GLUCOSE INCREASED [None]
